FAERS Safety Report 18655477 (Version 2)
Quarter: 2021Q1

REPORT INFORMATION
  Report Type: Spontaneous
  Country: US (occurrence: US)
  Receive Date: 20201223
  Receipt Date: 20210105
  Transmission Date: 20210419
  Serious: No
  Sender: FDA-Public Use
  Company Number: US-PFIZER INC-2020501400

PATIENT
  Age: 45 Year
  Sex: Female

DRUGS (2)
  1. GENOTROPIN MQ [Suspect]
     Active Substance: SOMATROPIN
     Dosage: 0.6 MG, DAILY
     Dates: start: 20140731
  2. GENOTROPIN MQ [Suspect]
     Active Substance: SOMATROPIN
     Dosage: 0.6 MG, WEEKLY (0.6MG MINIQUICK, 06.MG/DAY, 7DAYS/WK)
     Dates: start: 20140731

REACTIONS (2)
  - Illness [Unknown]
  - Sinusitis [Unknown]
